FAERS Safety Report 17016528 (Version 1)
Quarter: 2019Q4

REPORT INFORMATION
  Report Type: Spontaneous
  Country: US (occurrence: US)
  Receive Date: 20191110
  Receipt Date: 20191110
  Transmission Date: 20200122
  Serious: Yes (Disabling)
  Sender: FDA-Public Use
  Company Number: None

PATIENT
  Age: 52 Year
  Sex: Female
  Weight: 74.25 kg

DRUGS (12)
  1. ASPIRIN. [Concomitant]
     Active Substance: ASPIRIN
  2. NOVOLIN N [Concomitant]
     Active Substance: INSULIN HUMAN
  3. OZEMPIC [Suspect]
     Active Substance: SEMAGLUTIDE
     Indication: DIABETES MELLITUS
     Dosage: ?          QUANTITY:1 PEN;OTHER FREQUENCY:ONE TIME ONE WEEK;?
     Route: 058
     Dates: start: 20190920, end: 20191028
  4. METFORMIN [Concomitant]
     Active Substance: METFORMIN HYDROCHLORIDE
  5. ATORVASTIN [Concomitant]
     Active Substance: ATORVASTATIN
  6. HYDROCHLOROT [Concomitant]
     Active Substance: HYDROCHLOROTHIAZIDE
  7. NOVOLIN R [Suspect]
     Active Substance: INSULIN HUMAN
  8. ATENOLOL. [Concomitant]
     Active Substance: ATENOLOL
  9. MULTIVITAMINE [Concomitant]
  10. CLOPIDOGREL [Concomitant]
     Active Substance: CLOPIDOGREL BISULFATE
  11. AMLODIPINE [Concomitant]
     Active Substance: AMLODIPINE BESYLATE
  12. LISINOPRIL. [Concomitant]
     Active Substance: LISINOPRIL

REACTIONS (8)
  - Nausea [None]
  - Photophobia [None]
  - Somnolence [None]
  - Feeling abnormal [None]
  - Vision blurred [None]
  - Asthenia [None]
  - Fatigue [None]
  - Eye pain [None]

NARRATIVE: CASE EVENT DATE: 20191020
